FAERS Safety Report 4799969-5 (Version None)
Quarter: 2005Q4

REPORT INFORMATION
  Report Type: 
  Country: None (occurrence: None)
  Receive Date: 20051017
  Receipt Date: 20051010
  Transmission Date: 20060501
  Serious: Yes (Hospitalization)
  Sender: FDA-Public Use
  Company Number: US-BRISTOL-MYERS SQUIBB COMPANY-13140009

PATIENT
  Age: 71 Year
  Sex: Female
  Weight: 73 kg

DRUGS (8)
  1. GLUCOPHAGE [Suspect]
     Indication: DIABETES MELLITUS
     Dosage: GLUCOPHAGE 500MG IN THE AM AND 1000MG IN THE PM
     Dates: start: 19980601
  2. THYROID TAB [Concomitant]
  3. DIOVAN [Concomitant]
  4. MICRO-K [Concomitant]
  5. NEXIUM [Concomitant]
  6. LASIX [Concomitant]
  7. ZETIA [Concomitant]
  8. ZOCOR [Concomitant]

REACTIONS (2)
  - HYPERTENSION [None]
  - RENAL ARTERY STENOSIS [None]
